FAERS Safety Report 6662296-5 (Version None)
Quarter: 2010Q1

REPORT INFORMATION
  Report Type: 
  Country: None (occurrence: None)
  Receive Date: 20100322
  Receipt Date: 20100303
  Transmission Date: 20100710
  Serious: No
  Sender: FDA-Public Use
  Company Number: 2010-00305

PATIENT
  Age: 57 Year
  Sex: Male
  Weight: 147.419 kg

DRUGS (6)
  1. ZICAM COLD REMEDY PLUS SORE THROAT RELIEF LIQUI-LOZ [Suspect]
     Dosage: BID - 2 DOSES
     Dates: start: 20100226, end: 20100226
  2. PREVACID [Concomitant]
  3. JANUMET [Concomitant]
  4. PROPRANOLOL [Concomitant]
  5. FISH OIL [Concomitant]
  6. NABUMETONE [Concomitant]

REACTIONS (1)
  - AGEUSIA [None]
